FAERS Safety Report 10221180 (Version 5)
Quarter: 2016Q1

REPORT INFORMATION
  Report Type: Report from Study
  Country: JP (occurrence: JP)
  Receive Date: 20140606
  Receipt Date: 20160304
  Transmission Date: 20160525
  Serious: Yes (Death, Hospitalization)
  Sender: FDA-Public Use
  Company Number: JP-SA-2014SA073435

PATIENT
  Age: 10 Year
  Sex: Male
  Weight: 27 kg

DRUGS (42)
  1. SANDIMMUN [Concomitant]
     Active Substance: CYCLOSPORINE
     Indication: PROPHYLAXIS
     Dates: start: 20120723, end: 20120908
  2. VICCLOX [Concomitant]
     Active Substance: ACYCLOVIR SODIUM
     Dates: start: 20120829, end: 20120908
  3. CARBOHYDRATES NOS/SODIUM LACTATE/SODIUM CHLORIDE/POTASSIUM CHLORIDE [Concomitant]
     Dates: start: 20120716, end: 20120923
  4. FRAGMIN [Concomitant]
     Active Substance: DALTEPARIN SODIUM
     Indication: PROPHYLAXIS
     Dates: start: 20120719, end: 20120719
  5. NORMAL SALINE [Concomitant]
     Active Substance: SODIUM CHLORIDE
     Indication: PRODUCT SOLUBILITY ABNORMAL
     Dates: start: 20120718, end: 20120801
  6. FAMOTIDINE. [Concomitant]
     Active Substance: FAMOTIDINE
     Indication: GASTRITIS PROPHYLAXIS
     Dates: start: 20120717, end: 20120812
  7. PRODIF [Concomitant]
     Active Substance: FOSFLUCONAZOLE
     Indication: INFECTION PROPHYLAXIS
     Dates: start: 20120717, end: 20120820
  8. BUSCOPAN [Concomitant]
     Active Substance: BUTYLSCOPOLAMINE BROMIDE
     Indication: PROPHYLAXIS
     Dates: start: 20120816, end: 20120819
  9. FLUDARA [Suspect]
     Active Substance: FLUDARABINE PHOSPHATE
     Indication: NON-HODGKIN^S LYMPHOMA
     Route: 065
     Dates: start: 20120717, end: 20120721
  10. GRANISETRON [Concomitant]
     Active Substance: GRANISETRON
     Indication: PROPHYLAXIS
     Dates: start: 20120717, end: 20120722
  11. SOLACET D [Concomitant]
     Indication: PROPHYLAXIS
     Dates: start: 20120722, end: 20120723
  12. HUMAN HAPTOGLOBIN [Concomitant]
     Indication: PROPHYLAXIS
     Dates: start: 20120724, end: 20120724
  13. SAXIZON [Concomitant]
     Active Substance: HYDROCORTISONE SODIUM SUCCINATE
     Indication: PROPHYLAXIS
     Dates: start: 20120724, end: 20120901
  14. PRIMPERAN [Concomitant]
     Active Substance: METOCLOPRAMIDE HYDROCHLORIDE
     Indication: PROPHYLAXIS
     Dates: start: 20120816, end: 20120816
  15. ROHYPNOL [Concomitant]
     Active Substance: FLUNITRAZEPAM
     Dates: start: 20120823, end: 20120823
  16. OMEPRAL [Concomitant]
     Active Substance: OMEPRAZOLE
     Dates: start: 20120826, end: 20120922
  17. BACTRAMIN [Concomitant]
     Active Substance: SULFAMETHOXAZOLE\TRIMETHOPRIM
     Dates: start: 20120829, end: 20120905
  18. ZYVOX [Concomitant]
     Active Substance: LINEZOLID
     Dates: start: 20120905, end: 20120920
  19. STRONG NEO-MINOPHAGEN C [Concomitant]
     Active Substance: AMMONIUM GLYCYRRHIZATE\CYSTEINE HYDROCHLORIDE\GLYCINE
     Dates: start: 20120725, end: 20120816
  20. METHOTREXATE [Concomitant]
     Active Substance: METHOTREXATE
     Indication: PROPHYLAXIS
     Dates: start: 20120727, end: 20120804
  21. MORPHINE HYDROCHLORIDE [Concomitant]
     Active Substance: MORPHINE HYDROCHLORIDE
     Dates: start: 20120822, end: 20120923
  22. ATARAX-P [Concomitant]
     Active Substance: HYDROXYZINE HYDROCHLORIDE
     Dates: start: 20120817, end: 20120913
  23. VFEND [Concomitant]
     Active Substance: VORICONAZOLE
     Dates: start: 20120821, end: 20120920
  24. CONTOMIN [Concomitant]
     Active Substance: CHLORPROMAZINE
     Dates: start: 20120820, end: 20120823
  25. CIPROFLOXACIN. [Concomitant]
     Active Substance: CIPROFLOXACIN
     Dates: start: 20120902, end: 20120904
  26. BUSULFEX [Suspect]
     Active Substance: BUSULFAN
     Indication: NON-HODGKIN^S LYMPHOMA
     Route: 065
     Dates: start: 20120718, end: 20120722
  27. BUSULFEX [Suspect]
     Active Substance: BUSULFAN
     Indication: METASTASES TO BONE MARROW
     Route: 065
     Dates: start: 20120718, end: 20120722
  28. NEORAL [Suspect]
     Active Substance: CYCLOSPORINE
     Indication: PROPHYLAXIS
     Route: 065
     Dates: start: 20120723, end: 20120923
  29. HEPAFLUSH [Concomitant]
     Active Substance: HEPARIN SODIUM
     Indication: PROPHYLAXIS
     Dosage: SYRINGE
     Dates: start: 20120723, end: 20120723
  30. SOL-MELCORT [Concomitant]
     Active Substance: METHYLPREDNISOLONE SODIUM SUCCINATE
     Indication: PROPHYLAXIS
     Dates: start: 20120719, end: 20120922
  31. GRAN [Concomitant]
     Active Substance: FILGRASTIM
     Dates: start: 20120730, end: 20120914
  32. THYMOGLOBULINE [Suspect]
     Active Substance: LAPINE T-LYMPHOCYTE IMMUNE GLOBULIN
     Indication: BONE MARROW CONDITIONING REGIMEN
     Route: 042
     Dates: start: 20120719, end: 20120722
  33. KETALAR [Concomitant]
     Active Substance: KETAMINE HYDROCHLORIDE
     Indication: PROPHYLAXIS
     Dates: start: 20120807, end: 20120901
  34. DIAMOX SEQUELS [Concomitant]
     Active Substance: ACETAZOLAMIDE
     Dates: start: 20120817, end: 20120822
  35. FLUDARA [Suspect]
     Active Substance: FLUDARABINE PHOSPHATE
     Indication: METASTASES TO BONE MARROW
     Route: 065
     Dates: start: 20120717, end: 20120721
  36. KAYTWO N [Concomitant]
     Active Substance: MENATETRENONE
     Indication: PROPHYLAXIS
     Dates: start: 20120720, end: 20120722
  37. FENTANYL. [Concomitant]
     Active Substance: FENTANYL
     Indication: ORAL DISORDER
     Dates: start: 20120720, end: 20120815
  38. NICARPINE [Concomitant]
     Active Substance: NICARDIPINE
     Dates: start: 20120724, end: 20120914
  39. LASIX [Concomitant]
     Active Substance: FUROSEMIDE
     Indication: PROPHYLAXIS
     Dates: start: 20120810, end: 20120923
  40. INTRALIPOS [Concomitant]
     Active Substance: SOYBEAN OIL
     Indication: PROPHYLAXIS
     Dates: start: 20120817, end: 20120820
  41. AMBISOME [Concomitant]
     Active Substance: AMPHOTERICIN B
     Dates: start: 20120816, end: 20120820
  42. URSO [Concomitant]
     Active Substance: URSODIOL
     Indication: PROPHYLAXIS
     Dates: start: 20120724, end: 20120814

REACTIONS (10)
  - Sepsis [Not Recovered/Not Resolved]
  - Respiratory disorder [Fatal]
  - Cytokine storm [Fatal]
  - Pyrexia [Recovering/Resolving]
  - Human herpesvirus 6 infection [Recovered/Resolved]
  - Blood bilirubin increased [Not Recovered/Not Resolved]
  - Acute kidney injury [Not Recovered/Not Resolved]
  - Pseudomonal sepsis [Recovering/Resolving]
  - Seizure [Recovering/Resolving]
  - Stomatitis [Recovered/Resolved]

NARRATIVE: CASE EVENT DATE: 20120719
